FAERS Safety Report 23315366 (Version 1)
Quarter: 2023Q4

REPORT INFORMATION
  Report Type: Spontaneous
  Country: US (occurrence: None)
  Receive Date: 20231218
  Receipt Date: 20231218
  Transmission Date: 20240110
  Serious: No
  Sender: FDA-Public Use
  Company Number: None

PATIENT

DRUGS (2)
  1. GLIPIZIDE [Suspect]
     Active Substance: GLIPIZIDE
  2. CHLORPROMAZINE HYDROCHLORIDE [Suspect]
     Active Substance: CHLORPROMAZINE HYDROCHLORIDE

REACTIONS (5)
  - Fatigue [None]
  - Somnolence [None]
  - Product dispensing error [None]
  - Wrong product administered [None]
  - Medication error [None]

NARRATIVE: CASE EVENT DATE: 20231027
